FAERS Safety Report 6525236-5 (Version None)
Quarter: 2009Q4

REPORT INFORMATION
  Report Type: 
  Country: None (occurrence: None)
  Receive Date: 20091214
  Receipt Date: 20090302
  Transmission Date: 20100525
  Serious: Yes (Other)
  Sender: FDA-Public Use
  Company Number: 618351

PATIENT
  Age: 51 Year
  Sex: Female
  Weight: 115.7 kg

DRUGS (6)
  1. PEGASYS [Suspect]
     Indication: HEPATITIS C
  2. RIBAVIRIN [Suspect]
     Indication: HEPATITIS C
     Dosage: ORAL
     Route: 048
     Dates: start: 20090219, end: 20090228
  3. ALTACE [Concomitant]
  4. NORVASC [Concomitant]
  5. CRESTOR [Concomitant]
  6. INSULIN (INSULIN) [Concomitant]

REACTIONS (3)
  - DYSPNOEA [None]
  - NO THERAPEUTIC RESPONSE [None]
  - RASH [None]
